FAERS Safety Report 25021404 (Version 1)
Quarter: 2025Q1

REPORT INFORMATION
  Report Type: Spontaneous
  Country: US (occurrence: US)
  Receive Date: 20250228
  Receipt Date: 20250228
  Transmission Date: 20250409
  Serious: Yes (Hospitalization)
  Sender: CELLTRION
  Company Number: US-CELLTRION INC.-2025US005426

PATIENT

DRUGS (7)
  1. TRASTUZUMAB [Suspect]
     Active Substance: TRASTUZUMAB
     Indication: Breast cancer
  2. CAPECITABINE [Suspect]
     Active Substance: CAPECITABINE
     Indication: Breast cancer
  3. WARFARIN [Concomitant]
     Active Substance: WARFARIN
     Indication: Stress cardiomyopathy
     Route: 048
  4. WARFARIN [Concomitant]
     Active Substance: WARFARIN
     Indication: Cardiac ventricular thrombosis
  5. ATORVASTATIN [Concomitant]
     Active Substance: ATORVASTATIN
     Indication: Prophylaxis
  6. LOSARTAN [Concomitant]
     Active Substance: LOSARTAN
  7. CARVEDILOL [Concomitant]
     Active Substance: CARVEDILOL
     Indication: Hypertension

REACTIONS (3)
  - Cardiac ventricular thrombosis [Unknown]
  - Cerebral infarction [Unknown]
  - Stress cardiomyopathy [Unknown]
